FAERS Safety Report 12800688 (Version 1)
Quarter: 2016Q4

REPORT INFORMATION
  Report Type: Spontaneous
  Country: US (occurrence: US)
  Receive Date: 20161001
  Receipt Date: 20161001
  Transmission Date: 20170207
  Serious: No
  Sender: FDA-Public Use
  Company Number: US-ASTRAZENECA-2016SF03723

PATIENT
  Age: 24151 Day
  Sex: Female
  Weight: 88.5 kg

DRUGS (1)
  1. BYDUREON [Suspect]
     Active Substance: EXENATIDE
     Indication: TYPE 2 DIABETES MELLITUS
     Dosage: 2.0MG UNKNOWN
     Route: 058
     Dates: start: 201503

REACTIONS (3)
  - Intentional product misuse [Unknown]
  - Disturbance in attention [Unknown]
  - Product quality issue [Unknown]

NARRATIVE: CASE EVENT DATE: 20160927
